FAERS Safety Report 15179994 (Version 2)
Quarter: 2018Q3

REPORT INFORMATION
  Report Type: Spontaneous
  Country: US (occurrence: US)
  Receive Date: 20180723
  Receipt Date: 20180813
  Transmission Date: 20181010
  Serious: No
  Sender: FDA-Public Use
  Company Number: US-PFIZER INC-2018291510

PATIENT
  Age: 76 Year
  Sex: Male
  Weight: 136.8 kg

DRUGS (1)
  1. LYRICA [Suspect]
     Active Substance: PREGABALIN
     Indication: NEUROPATHY PERIPHERAL
     Dosage: 150 MG, 2X/DAY(2, 75MG CAPSULE, TWICE A DAY IN THE MORNING AND EVENING)
     Route: 048

REACTIONS (2)
  - Drug effect incomplete [Unknown]
  - Insomnia [Unknown]
